FAERS Safety Report 4582790-0 (Version None)
Quarter: 2005Q1

REPORT INFORMATION
  Report Type: 
  Country: None (occurrence: None)
  Receive Date: 20050215
  Receipt Date: 20050202
  Transmission Date: 20050727
  Serious: Yes (Hospitalization)
  Sender: FDA-Public Use
  Company Number: FR-GLAXOSMITHKLINE-B0369495A

PATIENT
  Age: 54 Year
  Sex: Female

DRUGS (6)
  1. DEROXAT [Suspect]
     Indication: ILL-DEFINED DISORDER
     Dosage: 30MG PER DAY
     Route: 048
  2. TEGRETOL [Suspect]
     Dosage: 400MG PER DAY
     Route: 048
  3. ALCOHOL [Suspect]
     Route: 048
     Dates: start: 20040921, end: 20040921
  4. MEPRONIZINE [Concomitant]
     Dosage: 1UNIT PER DAY
     Route: 048
     Dates: end: 20040923
  5. RISPERDAL [Concomitant]
     Dosage: 4MG PER DAY
     Route: 048
     Dates: end: 20040923
  6. SERESTA [Concomitant]
     Dosage: 125MG PER DAY
     Route: 048

REACTIONS (13)
  - ABDOMINAL DISTENSION [None]
  - ABDOMINAL PAIN [None]
  - ABDOMINAL PAIN UPPER [None]
  - ALANINE AMINOTRANSFERASE INCREASED [None]
  - ALCOHOL POISONING [None]
  - ANOREXIA [None]
  - ASPARTATE AMINOTRANSFERASE INCREASED [None]
  - DIARRHOEA [None]
  - DRUG INTERACTION [None]
  - DRUG LEVEL INCREASED [None]
  - FLATULENCE [None]
  - HEPATOMEGALY [None]
  - VOMITING [None]
